FAERS Safety Report 7744440-1 (Version None)
Quarter: 2011Q3

REPORT INFORMATION
  Report Type: 
  Country: None (occurrence: None)
  Receive Date: 20110912
  Receipt Date: 20110907
  Transmission Date: 20111222
  Serious: Yes (Other)
  Sender: FDA-Public Use
  Company Number: FR-PFIZER INC-2011209494

PATIENT
  Age: 80 Year
  Sex: Female
  Weight: 64 kg

DRUGS (3)
  1. CLINDAMYCIN HCL [Suspect]
     Indication: STAPHYLOCOCCAL INFECTION
     Dosage: 600 MG, 3X/DAY
     Route: 042
     Dates: start: 20110725, end: 20110812
  2. FUROSEMIDE [Suspect]
     Dosage: UNK
     Route: 042
     Dates: start: 20110803
  3. VANCOMYCIN HCL [Suspect]
     Indication: STAPHYLOCOCCAL INFECTION
     Dosage: 2 G, 1X/DAY
     Route: 042
     Dates: start: 20110725, end: 20110810

REACTIONS (2)
  - DRUG ERUPTION [None]
  - RENAL FAILURE [None]
